FAERS Safety Report 8482232 (Version 4)
Quarter: 2012Q4

REPORT INFORMATION
  Report Type: Report from Study
  Country: ES (occurrence: ES)
  Receive Date: 20120329
  Receipt Date: 20120831
  Transmission Date: 20130627
  Serious: Yes (Other)
  Sender: FDA-Public Use
  Company Number: ES-ROCHE-1051345

PATIENT
  Age: 65 Year
  Sex: Female

DRUGS (5)
  1. PEGASYS [Suspect]
     Indication: HEPATITIS C
     Route: 058
     Dates: start: 20120201, end: 20120307
  2. BOCEPREVIR [Suspect]
     Indication: HEPATITIS C
     Route: 048
     Dates: start: 20120302, end: 20120307
  3. COPEGUS [Suspect]
     Indication: HEPATITIS C
     Route: 048
     Dates: start: 20120201, end: 20120302
  4. COPEGUS [Suspect]
     Route: 048
     Dates: start: 20120302, end: 20120307
  5. FUROSEMIDE [Concomitant]
     Route: 048
     Dates: start: 20120307, end: 20120411

REACTIONS (4)
  - Anaemia [Recovered/Resolved]
  - Hyponatraemia [Unknown]
  - Oedema [Recovered/Resolved]
  - Oedema [Unknown]
